FAERS Safety Report 7215160-7 (Version None)
Quarter: 2011Q1

REPORT INFORMATION
  Report Type: 
  Country: None (occurrence: None)
  Receive Date: 20110107
  Receipt Date: 20100923
  Transmission Date: 20110831
  Serious: No
  Sender: FDA-Public Use
  Company Number: A0882966A

PATIENT
  Age: 47 Year
  Sex: Female

DRUGS (2)
  1. NIASPAN [Concomitant]
  2. LOVAZA [Suspect]
     Indication: BLOOD CHOLESTEROL INCREASED
     Dosage: 2CAP TWICE PER DAY
     Route: 048

REACTIONS (2)
  - INCORRECT STORAGE OF DRUG [None]
  - ERUCTATION [None]
